FAERS Safety Report 8564295-5 (Version None)
Quarter: 2012Q3

REPORT INFORMATION
  Report Type: 
  Country: None (occurrence: None)
  Receive Date: 20120803
  Receipt Date: 20120801
  Transmission Date: 20120928
  Serious: Yes (Life-Threatening, Hospitalization)
  Sender: FDA-Public Use
  Company Number: NL-JNJFOC-20120513098

PATIENT
  Sex: Male
  Weight: 102 kg

DRUGS (4)
  1. STELARA [Suspect]
     Route: 058
     Dates: start: 20120316
  2. STELARA [Suspect]
     Indication: PSORIASIS
     Route: 058
     Dates: start: 20100201
  3. STELARA [Suspect]
     Route: 058
     Dates: start: 20100501
  4. STELARA [Suspect]
     Route: 058
     Dates: start: 20100801, end: 20111001

REACTIONS (3)
  - WEIGHT INCREASED [None]
  - DRUG INEFFECTIVE [None]
  - CEREBROVASCULAR ACCIDENT [None]
